FAERS Safety Report 16610228 (Version 1)
Quarter: 2019Q3

REPORT INFORMATION
  Report Type: Spontaneous
  Country: US (occurrence: US)
  Receive Date: 20190721
  Receipt Date: 20190721
  Transmission Date: 20191004
  Serious: Yes (Other)
  Sender: FDA-Public Use
  Company Number: None

PATIENT
  Age: 50 Year
  Sex: Female
  Weight: 77.85 kg

DRUGS (2)
  1. PNS [Concomitant]
  2. AIMOVIG [Suspect]
     Active Substance: ERENUMAB-AOOE
     Indication: MIGRAINE
     Dosage: ?          QUANTITY:1 INJECTION(S);OTHER FREQUENCY:MONTHLY;?
     Route: 058
     Dates: start: 20180706, end: 20181008

REACTIONS (5)
  - Fatigue [None]
  - Myalgia [None]
  - Constipation [None]
  - Arthralgia [None]
  - Alopecia [None]

NARRATIVE: CASE EVENT DATE: 20181008
